FAERS Safety Report 23148610 (Version 1)
Quarter: 2023Q4

REPORT INFORMATION
  Report Type: Spontaneous
  Country: JP (occurrence: JP)
  Receive Date: 20231106
  Receipt Date: 20231106
  Transmission Date: 20240109
  Serious: Yes (Hospitalization, Disabling, Other)
  Sender: FDA-Public Use
  Company Number: JP-BAYER-2023A155542

PATIENT
  Sex: Male

DRUGS (2)
  1. EYLEA [Suspect]
     Active Substance: AFLIBERCEPT
     Indication: Age-related macular degeneration
     Dosage: UNK, ONCE, SOLUTION FOR INJECTION IN PRE-FILLED SYRINGE, 40MG/ML
     Dates: start: 20230925, end: 20230925
  2. UNSPECIFIED INGREDIENT [Suspect]
     Active Substance: UNSPECIFIED INGREDIENT
     Indication: Angiogram cerebral
     Dosage: UNK
     Dates: start: 20231006, end: 20231006

REACTIONS (2)
  - Hemiplegia [Not Recovered/Not Resolved]
  - Thrombotic cerebral infarction [Not Recovered/Not Resolved]

NARRATIVE: CASE EVENT DATE: 20231001
